FAERS Safety Report 5529698-1 (Version None)
Quarter: 2007Q4

REPORT INFORMATION
  Report Type: 
  Country: None (occurrence: None)
  Receive Date: 20071129
  Receipt Date: 20071121
  Transmission Date: 20080405
  Serious: Yes (Hospitalization)
  Sender: FDA-Public Use
  Company Number: IT-PFIZER INC-2007098550

PATIENT
  Sex: Female

DRUGS (2)
  1. GENOTROPIN [Suspect]
     Route: 058
     Dates: start: 20041020, end: 20070930
  2. EUTIROX [Concomitant]
     Route: 048
     Dates: start: 19860101, end: 20071120

REACTIONS (1)
  - THYROID CYST [None]
